FAERS Safety Report 10267903 (Version 2)
Quarter: 2014Q2

REPORT INFORMATION
  Report Type: Report from Study
  Country: US (occurrence: US)
  Receive Date: 20140630
  Receipt Date: 20140630
  Transmission Date: 20141212
  Serious: Yes (Death, Other)
  Sender: FDA-Public Use
  Company Number: US-BAYER-2014-019682

PATIENT
  Age: 74 Year
  Sex: Male
  Weight: 62.59 kg

DRUGS (10)
  1. STIVARGA [Suspect]
     Indication: COLORECTAL CANCER
     Dosage: 80 MG DAILY
     Route: 048
     Dates: start: 201312
  2. STIVARGA [Suspect]
     Indication: COLORECTAL CANCER
     Dosage: DAILY DOSE 120 MG
     Route: 048
     Dates: start: 201312, end: 201404
  3. STIVARGA [Suspect]
     Indication: COLORECTAL CANCER
     Dosage: 80 MG DAILY
     Route: 048
     Dates: start: 20140128, end: 20140217
  4. STIVARGA [Suspect]
     Indication: COLORECTAL CANCER
     Dosage: 40 MG, QD
     Route: 048
     Dates: start: 20000226, end: 20140318
  5. OCTREOTIDE [Concomitant]
     Dosage: 100 MG, ONCE
     Dates: start: 20140410
  6. KLOR-CON [Concomitant]
     Dosage: 20 MG, TID
     Route: 048
  7. LOMOTIL [DIPHENOXYLATE HYDROCHLORIDE] [Concomitant]
     Dosage: 2 DF, TID
  8. ATIVAN [Concomitant]
     Dosage: 0.5 MG, BID
     Route: 048
  9. SPIRONOLACTONE [Concomitant]
     Dosage: UNK
     Dates: start: 20130924
  10. HYDROCHLOROTHIAZIDE [Concomitant]
     Dosage: UNK
     Dates: start: 20130924

REACTIONS (7)
  - Blood potassium decreased [Fatal]
  - Colorectal cancer [Fatal]
  - Abdominal pain [None]
  - Diarrhoea [None]
  - Local swelling [None]
  - Muscular weakness [None]
  - Decreased appetite [None]
